FAERS Safety Report 7267155-5 (Version None)
Quarter: 2011Q1

REPORT INFORMATION
  Report Type: 
  Country: None (occurrence: None)
  Receive Date: 20110201
  Receipt Date: 20110124
  Transmission Date: 20110831
  Serious: Yes (Death)
  Sender: FDA-Public Use
  Company Number: US-ELI_LILLY_AND_COMPANY-US201101006075

PATIENT

DRUGS (4)
  1. OXALIPLATIN [Concomitant]
     Indication: NON-SMALL CELL LUNG CANCER
     Dosage: 130 MG/M2, UNK
  2. GEMCITABINE HYDROCHLORIDE [Suspect]
     Indication: NON-SMALL CELL LUNG CANCER
     Dosage: 1000 MG/M2, UNK
  3. ANTIEMETICS AND ANTINAUSEANTS [Concomitant]
  4. DEXAMETHASONE [Concomitant]

REACTIONS (1)
  - THROMBOCYTOPENIC PURPURA [None]
